FAERS Safety Report 26014292 (Version 1)
Quarter: 2025Q4

REPORT INFORMATION
  Report Type: Other
  Country: EU (occurrence: EU)
  Receive Date: 20251108
  Receipt Date: 20251108
  Transmission Date: 20260118
  Serious: Yes (Life-Threatening, Hospitalization)
  Sender: ZYDUS PHARM
  Company Number: None

PATIENT

DRUGS (5)
  1. PEMETREXED [Suspect]
     Active Substance: PEMETREXED
     Indication: Lung adenocarcinoma stage IV
     Dosage: 500 MILLIGRAM/SQ. METER EVERY 3 WEEKS
     Route: 042
     Dates: start: 20240919, end: 20241212
  2. PEMETREXED [Suspect]
     Active Substance: PEMETREXED
     Dosage: 500 MILLIGRAM/SQ. METER EVERY 3 WEEKS
     Route: 042
     Dates: start: 20250116, end: 20250813
  3. CARBOPLATIN [Concomitant]
     Active Substance: CARBOPLATIN
     Indication: Lung adenocarcinoma stage IV
     Dosage: UNK
     Route: 042
     Dates: start: 20240919, end: 20241212
  4. KEYTRUDA [Concomitant]
     Active Substance: PEMBROLIZUMAB
     Indication: Lung adenocarcinoma stage IV
     Dosage: 200 MILLIGRAM EVERY 3 WEEKS
     Route: 042
     Dates: start: 20240919, end: 20241212
  5. KEYTRUDA [Concomitant]
     Active Substance: PEMBROLIZUMAB
     Dosage: UNK
     Route: 042
     Dates: start: 20250116

REACTIONS (1)
  - Renal tubular necrosis [Not Recovered/Not Resolved]

NARRATIVE: CASE EVENT DATE: 20250501
